FAERS Safety Report 8901127 (Version 2)
Quarter: 2012Q4

REPORT INFORMATION
  Report Type: 
  Country: AU (occurrence: AU)
  Receive Date: 20121108
  Receipt Date: 20121127
  Transmission Date: 20130627
  Serious: Yes (Death)
  Sender: FDA-Public Use
  Company Number: AU-B.I. PHARMACEUTICALS,INC./RIDGEFIELD-2012-AU-01853AU

PATIENT
  Age: 71 Year
  Sex: Female
  Weight: 66 kg

DRUGS (6)
  1. PRADAXA [Suspect]
     Indication: ATRIAL FIBRILLATION
     Dosage: 300 mg
     Dates: start: 20110715, end: 20120919
  2. PRADAXA [Suspect]
     Dosage: 220 mg
     Dates: start: 20120920
  3. OROXINE [Concomitant]
     Dates: start: 20071120
  4. SPIRIVA [Concomitant]
     Dates: start: 20100521
  5. LIPITOR [Concomitant]
     Dates: start: 20120403
  6. BICOR [Concomitant]
     Dates: start: 20120622

REACTIONS (2)
  - Lung neoplasm malignant [Fatal]
  - Renal impairment [Unknown]
